FAERS Safety Report 6116925-5 (Version None)
Quarter: 2009Q1

REPORT INFORMATION
  Report Type: 
  Country: None (occurrence: None)
  Receive Date: 20090314
  Receipt Date: 20090102
  Transmission Date: 20090719
  Serious: No
  Sender: FDA-Public Use
  Company Number: US-ABBOTT-09P-163-0495640-00

PATIENT
  Sex: Female
  Weight: 77.18 kg

DRUGS (2)
  1. HUMIRA [Suspect]
     Indication: RHEUMATOID ARTHRITIS
     Route: 058
     Dates: start: 20060101, end: 20081228
  2. HUMIRA [Suspect]
     Dates: start: 20081231

REACTIONS (5)
  - FATIGUE [None]
  - NASOPHARYNGITIS [None]
  - PNEUMONIA VIRAL [None]
  - SINUS HEADACHE [None]
  - WHEEZING [None]
